FAERS Safety Report 7091005-3 (Version None)
Quarter: 2010Q4

REPORT INFORMATION
  Report Type: 
  Country: None (occurrence: None)
  Receive Date: 20101012
  Receipt Date: 20090929
  Transmission Date: 20110411
  Serious: Yes (Other)
  Sender: FDA-Public Use
  Company Number: 1000008091

PATIENT
  Age: 70 Year
  Sex: Female

DRUGS (8)
  1. LEXAPRO [Suspect]
     Indication: INSOMNIA
     Dosage: SEE IMAGE
     Route: 048
     Dates: start: 20070501, end: 20080301
  2. LEXAPRO [Suspect]
     Indication: INSOMNIA
     Dosage: SEE IMAGE
     Route: 048
     Dates: start: 20080301, end: 20090615
  3. LEXAPRO [Suspect]
     Indication: INSOMNIA
     Dosage: SEE IMAGE
     Route: 048
     Dates: start: 20090616, end: 20090622
  4. LEXAPRO [Suspect]
     Indication: INSOMNIA
     Dosage: SEE IMAGE
     Route: 048
     Dates: start: 20090623, end: 20090629
  5. LEXAPRO [Suspect]
     Indication: INSOMNIA
     Dosage: SEE IMAGE
     Route: 048
     Dates: start: 20090630, end: 20090706
  6. LEXAPRO [Suspect]
     Indication: INSOMNIA
     Dosage: SEE IMAGE
     Route: 048
     Dates: start: 20090707, end: 20090713
  7. AVAPRO [Concomitant]
  8. XANAX [Concomitant]

REACTIONS (8)
  - ANGER [None]
  - ANTISOCIAL BEHAVIOUR [None]
  - ASTHENIA [None]
  - BLOOD PRESSURE INCREASED [None]
  - DEPRESSION [None]
  - DIZZINESS [None]
  - MENTAL IMPAIRMENT [None]
  - SUICIDAL IDEATION [None]
